FAERS Safety Report 7482067-X (Version None)
Quarter: 2011Q2

REPORT INFORMATION
  Report Type: 
  Country: None (occurrence: None)
  Receive Date: 20110516
  Receipt Date: 20110506
  Transmission Date: 20111010
  Serious: Yes (Other)
  Sender: FDA-Public Use
  Company Number: PHHY2011TN37960

PATIENT
  Age: 53 Year
  Sex: Male

DRUGS (3)
  1. TACROLIMUS [Interacting]
     Dosage: 2 MG/DAY
  2. FLUCONAZOLE [Suspect]
     Indication: FUNGAL INFECTION
     Dosage: 100 MG, UNK
     Route: 042
  3. TACROLIMUS [Interacting]
     Indication: RENAL TRANSPLANT
     Dosage: 6 MG/DAY
     Route: 048

REACTIONS (4)
  - DRUG LEVEL INCREASED [None]
  - DRUG INTERACTION [None]
  - BLOOD CREATININE INCREASED [None]
  - HYPERGLYCAEMIA [None]
